FAERS Safety Report 7538855-4 (Version None)
Quarter: 2011Q2

REPORT INFORMATION
  Report Type: 
  Country: None (occurrence: None)
  Receive Date: 20110610
  Receipt Date: 20110527
  Transmission Date: 20111010
  Serious: Yes (Other)
  Sender: FDA-Public Use
  Company Number: ES-ELI_LILLY_AND_COMPANY-ES201103006795

PATIENT
  Sex: Female

DRUGS (8)
  1. ZAMENE [Concomitant]
     Indication: DERMATOMYOSITIS
     Dosage: 6 MG, UNK
     Route: 048
     Dates: start: 20000101
  2. ANALGILASA [Concomitant]
     Indication: PAIN
     Dosage: IF PAIN
     Route: 048
  3. IRBESARTAN [Concomitant]
     Indication: HYPERTENSION
     Dosage: 0.5 ALTERNATE DAYS
     Route: 048
     Dates: start: 20000101
  4. VITAMIN D [Concomitant]
  5. OMEPRAZOLE [Concomitant]
  6. DOLQUINE [Concomitant]
     Indication: DERMATOMYOSITIS
     Dosage: 1 AT NIGHT
     Route: 048
     Dates: start: 20060101
  7. FORTEO [Suspect]
     Indication: OSTEOPOROSIS
     Dosage: 20 UG, QD
     Route: 058
     Dates: start: 20090617, end: 20110218
  8. CALCIUM SANDOZ [Concomitant]
     Indication: OSTEOPOROSIS
     Dosage: 1 AT LUNCHTIME
     Route: 048

REACTIONS (6)
  - DERMATITIS [None]
  - BACK PAIN [None]
  - LOWER RESPIRATORY TRACT INFECTION [None]
  - PAIN IN EXTREMITY [None]
  - BLOOD CALCIUM INCREASED [None]
  - BREAST CANCER [None]
